FAERS Safety Report 15130969 (Version 3)
Quarter: 2019Q1

REPORT INFORMATION
  Report Type: Spontaneous
  Country: GR (occurrence: GR)
  Receive Date: 20180711
  Receipt Date: 20190207
  Transmission Date: 20190417
  Serious: Yes (Hospitalization, Other)
  Sender: FDA-Public Use
  Company Number: GR-MYLANLABS-2018M1049251

PATIENT
  Age: 44 Year
  Sex: Female

DRUGS (11)
  1. METRONIDAZOLE. [Concomitant]
     Active Substance: METRONIDAZOLE
     Indication: CLOSTRIDIUM DIFFICILE INFECTION
     Dosage: UNK
     Route: 048
  2. TEICOPLANIN [Concomitant]
     Active Substance: TEICOPLANIN
     Indication: ANTIFUNGAL TREATMENT
     Dosage: UNK
  3. BRIVUDINE [Interacting]
     Active Substance: BRIVUDINE
     Indication: COLORECTAL CANCER
     Dosage: 7.5 MG/KG, UNK
     Route: 065
  4. BRIVUDINE [Interacting]
     Active Substance: BRIVUDINE
     Indication: HERPES ZOSTER
     Dosage: 125 MG, QD (ON DAYS 8-14 OF THE SIXTH CYCLE)
     Route: 065
  5. BEVACIZUMAB. [Suspect]
     Active Substance: BEVACIZUMAB
     Indication: COLORECTAL CANCER METASTATIC
     Dosage: UNK
  6. PREDNISONE. [Concomitant]
     Active Substance: PREDNISONE
     Indication: ANTIFUNGAL TREATMENT
     Dosage: 1 MG/KG, UNK
  7. BEVACIZUMAB. [Suspect]
     Active Substance: BEVACIZUMAB
     Indication: COLORECTAL CANCER
     Dosage: 7.5 MG/KG, 21 DAYS
     Route: 065
  8. FLUCONAZOLE. [Concomitant]
     Active Substance: FLUCONAZOLE
     Indication: ANTIFUNGAL TREATMENT
     Dosage: UNK
  9. FILGRASTIM [Concomitant]
     Active Substance: FILGRASTIM
     Indication: PRODUCT USED FOR UNKNOWN INDICATION
     Dosage: UNK
  10. CAPECITABINE. [Suspect]
     Active Substance: CAPECITABINE
     Indication: COLORECTAL CANCER
     Dosage: 1250 MG/M2, QD
     Route: 065
  11. CAPECITABINE. [Interacting]
     Active Substance: CAPECITABINE
     Indication: COLORECTAL CANCER METASTATIC

REACTIONS (13)
  - Rash maculo-papular [Recovered/Resolved]
  - Alopecia [Recovered/Resolved]
  - Contraindicated product administered [Unknown]
  - Oesophagitis [Recovered/Resolved]
  - Stomatitis [Recovered/Resolved]
  - Dysphagia [Recovered/Resolved]
  - Neutropenia [Recovered/Resolved]
  - Diarrhoea [Recovered/Resolved]
  - Anaemia [Recovered/Resolved]
  - Thrombocytopenia [Recovered/Resolved]
  - Drug interaction [Unknown]
  - Clostridium difficile infection [Unknown]
  - Toxicity to various agents [Recovered/Resolved]
